FAERS Safety Report 15989002 (Version 3)
Quarter: 2019Q2

REPORT INFORMATION
  Report Type: Spontaneous
  Country: DE (occurrence: DE)
  Receive Date: 20190221
  Receipt Date: 20190410
  Transmission Date: 20190711
  Serious: Yes (Other)
  Sender: FDA-Public Use
  Company Number: DE-AUROBINDO-AUR-APL-2019-007697

PATIENT

DRUGS (9)
  1. METFORMIN AXCOUNT [Concomitant]
     Active Substance: METFORMIN HYDROCHLORIDE
     Indication: PRODUCT USED FOR UNKNOWN INDICATION
     Dosage: 100 MILLIGRAM
  2. AMLODIPINE [Concomitant]
     Active Substance: AMLODIPINE BESYLATE
     Indication: PRODUCT USED FOR UNKNOWN INDICATION
  3. FLUANXOL [Concomitant]
     Active Substance: FLUPENTIXOL
     Indication: PRODUCT USED FOR UNKNOWN INDICATION
  4. SERTRALINE [Suspect]
     Active Substance: SERTRALINE HYDROCHLORIDE
     Indication: DEPRESSION
     Dosage: 25 MILLIGRAM
     Route: 048
     Dates: start: 20181211
  5. BISOPROLOL [Concomitant]
     Active Substance: BISOPROLOL
     Indication: PRODUCT USED FOR UNKNOWN INDICATION
     Dosage: 5 MILLIGRAM
  6. SERTRALINE [Suspect]
     Active Substance: SERTRALINE HYDROCHLORIDE
     Dosage: 50 UNK
     Dates: start: 20190126
  7. RAMIPRIL. [Concomitant]
     Active Substance: RAMIPRIL
     Indication: PRODUCT USED FOR UNKNOWN INDICATION
  8. SERTRALINE [Suspect]
     Active Substance: SERTRALINE HYDROCHLORIDE
     Dosage: 25 UNK
     Dates: start: 20190128, end: 20190131
  9. PANTOPRAZOLE [Concomitant]
     Active Substance: PANTOPRAZOLE
     Indication: PRODUCT USED FOR UNKNOWN INDICATION

REACTIONS (14)
  - Chest pain [Unknown]
  - Salivary hypersecretion [Unknown]
  - Tinnitus [Unknown]
  - Vaginal discharge [Unknown]
  - Hypoaesthesia [Unknown]
  - Angina pectoris [Unknown]
  - Dizziness postural [Unknown]
  - Restlessness [Unknown]
  - Insomnia [Unknown]
  - Suicidal ideation [Recovered/Resolved]
  - Nightmare [Unknown]
  - Back pain [Unknown]
  - Aggression [Recovered/Resolved]
  - Taste disorder [Unknown]

NARRATIVE: CASE EVENT DATE: 20190126
